FAERS Safety Report 4649560-6 (Version None)
Quarter: 2005Q2

REPORT INFORMATION
  Report Type: 
  Country: None (occurrence: None)
  Receive Date: 20050427
  Receipt Date: 20050411
  Transmission Date: 20051028
  Serious: Yes (Other)
  Sender: FDA-Public Use
  Company Number: 2005-DE-01382GD

PATIENT

DRUGS (3)
  1. NEVIRAPINE (NEVIRAPINE) [Suspect]
     Indication: HIV INFECTION
     Dosage: 400 MG
  2. TENOFOVIR (TENOFOVIR) [Suspect]
     Indication: HIV INFECTION
     Dosage: 300 MG
  3. DIDANOSIDE EC (DIDANOSIDE) [Suspect]
     Indication: HIV INFECTION
     Dosage: 250 MG OR 200 MG IF THE BODY WEIGHT WAS }/= 60 KG RESPECTIVELY

REACTIONS (2)
  - DRUG RESISTANCE [None]
  - THERAPY NON-RESPONDER [None]
